FAERS Safety Report 9263819 (Version 3)
Quarter: 2013Q3

REPORT INFORMATION
  Report Type: Spontaneous
  Country: US (occurrence: US)
  Receive Date: 20130430
  Receipt Date: 20130926
  Transmission Date: 20140515
  Serious: Yes (Hospitalization, Other)
  Sender: FDA-Public Use
  Company Number: US-BAYER-2013-051924

PATIENT
  Age: 31 Year
  Sex: Female
  Weight: 88.44 kg

DRUGS (9)
  1. YASMIN [Suspect]
     Indication: ACNE
     Dosage: UNK
     Dates: start: 20030524, end: 20040322
  2. YASMIN [Suspect]
     Indication: CONTRACEPTION
  3. YASMIN [Suspect]
     Indication: PREMENSTRUAL SYNDROME
  4. ROBAXIN [Concomitant]
     Dosage: 750 MG, UNK
     Route: 048
     Dates: start: 20031014
  5. MOTRIN [Concomitant]
     Dosage: 600 MG, UNK
     Route: 048
     Dates: start: 20031014
  6. PENICILLIN VK [Concomitant]
     Dosage: 500 MG, UNK
     Route: 048
     Dates: start: 20040611
  7. NAPROXEN [Concomitant]
     Dosage: 500 MG, UNK
     Route: 048
     Dates: start: 20040724
  8. ADVAIR [Concomitant]
     Indication: ASTHMA
     Dosage: INHALER
  9. PREVACID [Concomitant]
     Route: 048

REACTIONS (9)
  - Thrombophlebitis superficial [None]
  - Pulmonary embolism [None]
  - Deep vein thrombosis [None]
  - Injury [None]
  - Pain [None]
  - Emotional distress [None]
  - Fear [None]
  - Anxiety [None]
  - Pain [None]
